FAERS Safety Report 19123111 (Version 2)
Quarter: 2021Q2

REPORT INFORMATION
  Report Type: Spontaneous
  Country: US (occurrence: US)
  Receive Date: 20210412
  Receipt Date: 20210504
  Transmission Date: 20210717
  Serious: No
  Sender: FDA-Public Use
  Company Number: US-PFIZER INC-2021295718

PATIENT
  Age: 54 Year
  Sex: Male

DRUGS (1)
  1. XELJANZ XR [Suspect]
     Active Substance: TOFACITINIB CITRATE
     Indication: RHEUMATOID ARTHRITIS
     Dosage: 11 MG, DAILY
     Route: 048
     Dates: start: 20210206, end: 20210407

REACTIONS (4)
  - Intentional dose omission [Unknown]
  - COVID-19 [Unknown]
  - Product dose omission in error [Unknown]
  - Depressed mood [Unknown]

NARRATIVE: CASE EVENT DATE: 2021
